FAERS Safety Report 6854177-9 (Version None)
Quarter: 2010Q3

REPORT INFORMATION
  Report Type: 
  Country: None (occurrence: None)
  Receive Date: 20100717
  Receipt Date: 20080207
  Transmission Date: 20110219
  Serious: No
  Sender: FDA-Public Use
  Company Number: US-PFIZER INC-2007105698

PATIENT
  Sex: Female
  Weight: 65.909 kg

DRUGS (8)
  1. CHANTIX [Suspect]
     Indication: SMOKING CESSATION THERAPY
     Dates: start: 20070905
  2. ULTRAM [Concomitant]
  3. CELEBREX [Concomitant]
  4. LEXAPRO [Concomitant]
  5. VALSARTAN [Concomitant]
  6. SOMA [Concomitant]
  7. CLONAZEPAM [Concomitant]
  8. THEOPHYLLINE [Concomitant]

REACTIONS (5)
  - CONDITION AGGRAVATED [None]
  - FATIGUE [None]
  - GASTROENTERITIS VIRAL [None]
  - NAUSEA [None]
  - NERVOUSNESS [None]
